FAERS Safety Report 4831336-8 (Version None)
Quarter: 2005Q4

REPORT INFORMATION
  Report Type: 
  Country: None (occurrence: None)
  Receive Date: 20051118
  Receipt Date: 20051108
  Transmission Date: 20060501
  Serious: Yes (Hospitalization)
  Sender: FDA-Public Use
  Company Number: US-JNJFOC-20040204428

PATIENT
  Sex: Female
  Weight: 65.77 kg

DRUGS (7)
  1. DURAGESIC-100 [Suspect]
     Route: 062
     Dates: start: 20031001
  2. DURAGESIC-100 [Suspect]
     Dosage: APPLIED THREE (3) 25 UG/HR PATCHES AND CHANGED ONE PATCH DAILY.
     Route: 062
     Dates: start: 20031001
  3. LEVOXYL [Concomitant]
     Indication: HYPOTHYROIDISM
  4. PRILOSEC [Concomitant]
  5. ZELNORM [Concomitant]
  6. CELEXA [Concomitant]
  7. MIRALAX [Concomitant]

REACTIONS (3)
  - CONVULSION [None]
  - MEDICATION ERROR [None]
  - URTICARIA [None]
